FAERS Safety Report 9822132 (Version 1)
Quarter: 2014Q1

REPORT INFORMATION
  Report Type: Spontaneous
  Country: CA (occurrence: CA)
  Receive Date: 20140116
  Receipt Date: 20140116
  Transmission Date: 20141002
  Serious: Yes (Other)
  Sender: FDA-Public Use
  Company Number: CA-ASTRAZENECA-2014SE01263

PATIENT
  Sex: Male
  Weight: 93 kg

DRUGS (11)
  1. CRESTOR [Suspect]
     Route: 048
  2. ASPIRIN [Concomitant]
  3. ATENOLOL [Concomitant]
  4. COVERSYL [Concomitant]
  5. DILANTIN [Concomitant]
  6. GLUCOPHAGE [Concomitant]
  7. LASIX [Concomitant]
  8. LOVENOX [Concomitant]
     Route: 058
  9. NORVASC [Concomitant]
  10. PLAVIX [Concomitant]
  11. ZANTAC [Concomitant]

REACTIONS (2)
  - Confusional state [Unknown]
  - Grand mal convulsion [Unknown]
